FAERS Safety Report 16529885 (Version 4)
Quarter: 2024Q2

REPORT INFORMATION
  Report Type: Spontaneous
  Country: AT (occurrence: AT)
  Receive Date: 20190704
  Receipt Date: 20240605
  Transmission Date: 20240716
  Serious: Yes (Hospitalization)
  Sender: FDA-Public Use
  Company Number: AT-AMGEN-AUTNI2019003999

PATIENT
  Age: 78 Year
  Sex: Female
  Weight: 58 kg

DRUGS (43)
  1. XGEVA [Suspect]
     Active Substance: DENOSUMAB
     Indication: HER2 positive breast cancer
     Dosage: 120 MILLIGRAM, QMO
     Route: 058
     Dates: start: 20181012
  2. HERCEPTIN [Suspect]
     Active Substance: TRASTUZUMAB
     Indication: HER2 positive breast cancer
     Dosage: 464 MILLIGRAM, Q3WK;MOST RECENT DOSE PRIOR TO THE EVENT: 21/SEP/2021
     Route: 040
     Dates: start: 20180810, end: 20180810
  3. HERCEPTIN [Suspect]
     Active Substance: TRASTUZUMAB
     Dosage: 336 MILLIGRAM, Q3WK
     Route: 042
     Dates: start: 20180921, end: 20181106
  4. PERJETA [Suspect]
     Active Substance: PERTUZUMAB
     Indication: HER2 positive breast cancer
     Dosage: 840 MILLIGRAM, Q3WK/ MOST RECENT DOSE PRIOR TO THE EVENT: 21/SEP/2018
     Route: 040
     Dates: start: 20180810, end: 20180810
  5. PERJETA [Suspect]
     Active Substance: PERTUZUMAB
     Dosage: 420 MILLIGRAM, Q3WK
     Route: 040
     Dates: start: 20180921, end: 20190201
  6. FEMARA [Suspect]
     Active Substance: LETROZOLE
     Indication: HER2 positive breast cancer
     Dosage: 2.5 MILLIGRAM, QD
     Route: 048
     Dates: start: 20181029
  7. ONTRUZANT [Suspect]
     Active Substance: TRASTUZUMAB-DTTB
     Indication: HER2 positive breast cancer
     Dosage: 330 MILLIGRAM, Q3WK
     Route: 040
     Dates: start: 20190405, end: 20190517
  8. ONTRUZANT [Suspect]
     Active Substance: TRASTUZUMAB-DTTB
     Dosage: 348 MILLIGRAM, Q3WK
     Route: 040
     Dates: start: 20190607, end: 20200221
  9. ONTRUZANT [Suspect]
     Active Substance: TRASTUZUMAB-DTTB
     Dosage: 360 MILLIGRAM, Q3WK
     Route: 040
     Dates: start: 20200424, end: 20220928
  10. ONTRUZANT [Suspect]
     Active Substance: TRASTUZUMAB-DTTB
     Dosage: 336 MILLIGRAM, Q3WK
     Route: 040
     Dates: start: 20181130, end: 20190111
  11. ONTRUZANT [Suspect]
     Active Substance: TRASTUZUMAB-DTTB
     Dosage: 300 MILLIGRAM, Q3WK
     Route: 040
     Dates: start: 20190201, end: 20190315
  12. PACLITAXEL [Suspect]
     Active Substance: PACLITAXEL
     Indication: HER2 positive breast cancer
     Dosage: 129.61 MILLIGRAM, QWK
     Route: 058
     Dates: start: 20180810, end: 20180824
  13. PACLITAXEL [Suspect]
     Active Substance: PACLITAXEL
     Dosage: 279.32 MILLIGRAM, QWK
     Route: 040
     Dates: start: 20180921, end: 20180921
  14. PACLITAXEL [Suspect]
     Active Substance: PACLITAXEL
     Dosage: 127.69 MILLIGRAM, QWK
     Route: 040
     Dates: start: 20180928, end: 20181019
  15. RANITIDINE HYDROCHLORIDE [Concomitant]
     Active Substance: RANITIDINE HYDROCHLORIDE
     Indication: Prophylaxis
     Dosage: 4 MILLIGRAM, QWK
     Dates: start: 20180810, end: 20181019
  16. DEXABENE [Concomitant]
     Indication: Prophylaxis
     Dosage: ONGOING = NOT CHECKED
     Route: 065
     Dates: start: 20180810, end: 20181019
  17. ASPIRIN [Concomitant]
     Active Substance: ASPIRIN
     Dosage: 100 MILLIGRAM, QD
     Dates: start: 20181012, end: 20181115
  18. AMLODIPINE [Concomitant]
     Active Substance: AMLODIPINE BESYLATE
     Dosage: 5 MILLIGRAM
     Dates: start: 201812
  19. AMLODIPINE [Concomitant]
     Active Substance: AMLODIPINE BESYLATE
     Dosage: UNK
     Dates: start: 20181215, end: 20221213
  20. METOPROLOL [Concomitant]
     Active Substance: METOPROLOL
     Dosage: 47.5 MILLIGRAM, QD
  21. ACEMIN [Concomitant]
     Dosage: 20 MILLIGRAM, QD
     Route: 065
  22. KYTRIL [Concomitant]
     Active Substance: GRANISETRON HYDROCHLORIDE
     Dosage: 3 MILLIGRAM, QWK
     Dates: start: 20180810, end: 20181019
  23. VITAMINS WITH MINERALS [Concomitant]
     Active Substance: MINERALS\VITAMINS
     Dosage: UNK
     Route: 065
     Dates: start: 20181029, end: 20190615
  24. DIMETHINDENE MALEATE [Concomitant]
     Active Substance: DIMETHINDENE MALEATE
     Indication: Prophylaxis
     Dosage: 3 MILLIGRAM, QWK
     Dates: start: 20180810, end: 20181019
  25. LEVOCETIRIZINE DIHYDROCHLORIDE [Concomitant]
     Active Substance: LEVOCETIRIZINE DIHYDROCHLORIDE
     Dosage: 5 MILLIGRAM
     Dates: start: 20221215
  26. RIVASTIGMINE [Concomitant]
     Active Substance: RIVASTIGMINE
     Dosage: UNK
  27. PANTOPRAZOLE SODIUM [Concomitant]
     Active Substance: PANTOPRAZOLE SODIUM
     Dosage: 40 MILLIGRAM
  28. CALCIUM CARBONATE\CHOLECALCIFEROL [Concomitant]
     Active Substance: CALCIUM CARBONATE\CHOLECALCIFEROL
     Indication: Prophylaxis
     Dosage: UNK, QD
     Dates: start: 20191230
  29. Kalioral [Concomitant]
     Indication: Anaemia
     Dosage: UNK
     Dates: start: 20190103, end: 20190115
  30. DEXAGENTA POS [Concomitant]
     Dosage: UNK
  31. GLUCOPHAGE [Concomitant]
     Active Substance: METFORMIN HYDROCHLORIDE
     Indication: Diabetes mellitus
     Dosage: 500 MILLIGRAM
  32. CIPRALEX [Concomitant]
     Active Substance: ESCITALOPRAM OXALATE
     Dosage: 5 MILLIGRAM, QD
     Dates: start: 201901
  33. CIPRALEX [Concomitant]
     Active Substance: ESCITALOPRAM OXALATE
     Dosage: UNK
     Dates: start: 20190115, end: 20221213
  34. Paspertin [Concomitant]
     Indication: Nausea
     Dosage: UNK, BID
     Dates: start: 20181012, end: 20181029
  35. Paspertin [Concomitant]
     Dosage: UNK
     Dates: start: 20181029, end: 20190615
  36. Oleovit [Concomitant]
     Dosage: 28 GTT DROPS, QD
     Dates: start: 20221213
  37. Dulcolax [Concomitant]
  38. DIPYRONE [Concomitant]
     Active Substance: DIPYRONE
     Indication: Pain
     Dosage: 25 GTT DROPS
     Dates: start: 20221220
  39. PREGABALIN [Concomitant]
     Active Substance: PREGABALIN
  40. AMLODIPINE BESYLATE [Concomitant]
     Active Substance: AMLODIPINE BESYLATE
  41. Yomogi [Concomitant]
     Indication: Anaemia
     Dosage: UNK
     Dates: start: 20190103, end: 20190115
  42. FERROUS SULFATE\SERINE [Concomitant]
     Active Substance: FERROUS SULFATE\SERINE
     Indication: Anaemia
     Dosage: UNK
     Dates: start: 20190103, end: 20190201
  43. DEXAGENTA [Concomitant]
     Dosage: UNK UNK, BID
     Dates: start: 20210105, end: 20210118

REACTIONS (8)
  - Anaemia [Recovered/Resolved]
  - Epistaxis [Recovered/Resolved]
  - Oedema peripheral [Recovered/Resolved]
  - Fatigue [Recovered/Resolved]
  - Nausea [Recovered/Resolved]
  - Lymphoedema [Recovered/Resolved]
  - Abdominal pain [Recovered/Resolved]
  - Off label use [Unknown]

NARRATIVE: CASE EVENT DATE: 20180928
